FAERS Safety Report 8613471-1 (Version None)
Quarter: 2012Q3

REPORT INFORMATION
  Report Type: 
  Country: None (occurrence: None)
  Receive Date: 20120823
  Receipt Date: 20120807
  Transmission Date: 20120928
  Serious: Yes (Hospitalization)
  Sender: FDA-Public Use
  Company Number: JP-009507513-1208JPN003971

PATIENT

DRUGS (11)
  1. REBETOL [Suspect]
     Route: 048
  2. REBETOL [Suspect]
     Indication: HEPATITIS C
     Dosage: 600 MG, ONCE
     Route: 048
     Dates: start: 20120517, end: 20120613
  3. GASMOTIN [Concomitant]
     Indication: PROPHYLAXIS
     Route: 048
     Dates: start: 20120517
  4. TELAVIC [Suspect]
     Indication: HEPATITIS C
     Dosage: 2250 MG, QD
     Route: 048
     Dates: start: 20120517, end: 20120525
  5. NIZATIDINE [Concomitant]
     Indication: PROPHYLAXIS
     Dosage: 150 MG, QD
     Route: 048
     Dates: start: 20120517
  6. PEG-INTRON [Suspect]
     Indication: HEPATITIS C
     Dosage: 1.5MCG/KG/WEEK
     Route: 058
     Dates: start: 20120517
  7. TELAVIC [Suspect]
     Dosage: 1500 MG, ONCE
     Route: 048
     Dates: start: 20120718, end: 20120726
  8. TELAVIC [Suspect]
     Dosage: 2250 MG, QD
     Route: 048
  9. MOTILIUM [Concomitant]
     Indication: PROPHYLAXIS
     Route: 048
     Dates: start: 20120517
  10. REBETOL [Suspect]
     Dosage: 400 MG, QD
     Route: 048
     Dates: start: 20120614, end: 20120628
  11. REBETOL [Suspect]
     Dosage: 400 MG, QD
     Route: 048

REACTIONS (5)
  - HYPERGLYCAEMIA [None]
  - MALAISE [None]
  - DECREASED APPETITE [None]
  - DRUG ERUPTION [None]
  - HAEMOGLOBIN DECREASED [None]
